FAERS Safety Report 8223811-3 (Version None)
Quarter: 2012Q1

REPORT INFORMATION
  Report Type: 
  Country: None (occurrence: None)
  Receive Date: 20120321
  Receipt Date: 20120321
  Transmission Date: 20120608
  Serious: Yes (Life-Threatening, Hospitalization, Other)
  Sender: FDA-Public Use
  Company Number: None

PATIENT
  Age: 24 Year
  Sex: Male
  Weight: 104.32 kg

DRUGS (1)
  1. CELEXA [Suspect]
     Indication: BIPOLAR DISORDER
     Dosage: I THINK 20 MGS
     Route: 048
     Dates: start: 20110718, end: 20120301

REACTIONS (13)
  - WEIGHT INCREASED [None]
  - PAINFUL RESPIRATION [None]
  - ASTHENIA [None]
  - BLOOD CHOLESTEROL INCREASED [None]
  - DYSPNOEA [None]
  - QUALITY OF LIFE DECREASED [None]
  - IRRITABILITY [None]
  - DISCOMFORT [None]
  - FATIGUE [None]
  - UNEVALUABLE EVENT [None]
  - INSOMNIA [None]
  - DECREASED ACTIVITY [None]
  - PULMONARY THROMBOSIS [None]
